FAERS Safety Report 6821070-7 (Version None)
Quarter: 2010Q3

REPORT INFORMATION
  Report Type: 
  Country: None (occurrence: None)
  Receive Date: 20100707
  Receipt Date: 20071002
  Transmission Date: 20110219
  Serious: No
  Sender: FDA-Public Use
  Company Number: US-PFIZER INC-2007082186

PATIENT
  Sex: Female

DRUGS (3)
  1. ZOLOFT [Suspect]
     Dates: start: 20040101
  2. NEURONTIN [Concomitant]
  3. CORTICOSTEROIDS [Concomitant]

REACTIONS (7)
  - ANXIETY [None]
  - CONSTIPATION [None]
  - CRYING [None]
  - DEPRESSION [None]
  - DYSKINESIA [None]
  - TREMOR [None]
  - WEIGHT INCREASED [None]
